FAERS Safety Report 4484700-3 (Version None)
Quarter: 2004Q4

REPORT INFORMATION
  Report Type: 
  Country: None (occurrence: None)
  Receive Date: 20041022
  Receipt Date: 20041006
  Transmission Date: 20050328
  Serious: Yes (Death)
  Sender: FDA-Public Use
  Company Number: 2004AL000536

PATIENT
  Age: 42 Year

DRUGS (3)
  1. DIAZEPAM [Suspect]
  2. METHADONE HCL [Suspect]
  3. COCAINE [Suspect]

REACTIONS (3)
  - CARDIO-RESPIRATORY ARREST [None]
  - INTENTIONAL MISUSE [None]
  - MULTIPLE DRUG OVERDOSE [None]
